FAERS Safety Report 8174879-4 (Version None)
Quarter: 2012Q1

REPORT INFORMATION
  Report Type: 
  Country: None (occurrence: None)
  Receive Date: 20120229
  Receipt Date: 20110411
  Transmission Date: 20120608
  Serious: No
  Sender: FDA-Public Use
  Company Number: US-GLAXOSMITHKLINE-A0922471A

PATIENT
  Age: 61 Year
  Sex: Female

DRUGS (5)
  1. VALTREX [Suspect]
     Indication: GENITAL HERPES
     Dosage: 500MG ALTERNATE DAYS
     Route: 048
     Dates: start: 20101101
  2. CYANOCOBALAMIN [Concomitant]
  3. NORVASC [Concomitant]
  4. ALDACTONE [Concomitant]
  5. ZOCOR [Concomitant]

REACTIONS (2)
  - NIGHTMARE [None]
  - ALOPECIA [None]
